FAERS Safety Report 7593827-9 (Version None)
Quarter: 2011Q3

REPORT INFORMATION
  Report Type: 
  Country: None (occurrence: None)
  Receive Date: 20110706
  Receipt Date: 20110623
  Transmission Date: 20111222
  Serious: Yes (Hospitalization)
  Sender: FDA-Public Use
  Company Number: FR-UCBSA-035967

PATIENT
  Sex: Female

DRUGS (3)
  1. CARBOPLATIN [Suspect]
     Indication: LUNG NEOPLASM MALIGNANT
     Dosage: BY COURSE
     Route: 042
     Dates: start: 20110520, end: 20110520
  2. TAXOL [Suspect]
     Indication: LUNG NEOPLASM MALIGNANT
     Dosage: BY COURSE
     Route: 042
     Dates: start: 20110520, end: 20110520
  3. XYZAL [Suspect]
     Indication: ALLERGY PROPHYLAXIS
     Dosage: BY COURSE
     Route: 048
     Dates: start: 20110520, end: 20110520

REACTIONS (1)
  - ANAPHYLACTIC SHOCK [None]
